FAERS Safety Report 9260539 (Version 1)
Quarter: 2013Q2

REPORT INFORMATION
  Report Type: Spontaneous
  Country: US (occurrence: US)
  Receive Date: 20130429
  Receipt Date: 20130429
  Transmission Date: 20140414
  Serious: Yes (Death)
  Sender: FDA-Public Use
  Company Number: US-SANOFI-AVENTIS-2013SA042769

PATIENT
  Age: 72 Year
  Sex: Male

DRUGS (4)
  1. JEVTANA [Suspect]
     Indication: PROSTATE CANCER METASTATIC
     Dates: start: 20120403, end: 20120403
  2. JEVTANA [Suspect]
     Indication: PROSTATE CANCER METASTATIC
     Dates: start: 20120501, end: 20120501
  3. JEVTANA [Suspect]
     Indication: PROSTATE CANCER METASTATIC
     Dates: start: 20120530, end: 20120530
  4. JEVTANA [Suspect]
     Indication: PROSTATE CANCER METASTATIC
     Dates: start: 20120712, end: 20120712

REACTIONS (1)
  - Death [Fatal]
